FAERS Safety Report 7508847-X (Version None)
Quarter: 2011Q2

REPORT INFORMATION
  Report Type: 
  Country: None (occurrence: None)
  Receive Date: 20110527
  Receipt Date: 20110513
  Transmission Date: 20111010
  Serious: Yes (Other)
  Sender: FDA-Public Use
  Company Number: PHHY2010CA85387

PATIENT
  Sex: Male

DRUGS (3)
  1. SANDOSTATIN [Suspect]
     Indication: DIARRHOEA
     Dosage: 2 ML, Q4H
     Route: 058
     Dates: start: 20100601
  2. SANDOSTATIN [Suspect]
     Dosage: 20 MG
     Route: 030
     Dates: start: 20101220
  3. CHEMOTHERAPEUTICS NOS [Concomitant]

REACTIONS (3)
  - ABDOMINAL NEOPLASM [None]
  - DRUG INEFFECTIVE [None]
  - DIARRHOEA [None]
